FAERS Safety Report 10561597 (Version 2)
Quarter: 2019Q1

REPORT INFORMATION
  Report Type: Report from Study
  Country: DE (occurrence: DE)
  Receive Date: 20141103
  Receipt Date: 20190126
  Transmission Date: 20190417
  Serious: Yes (Hospitalization)
  Sender: FDA-Public Use
  Company Number: PHHY2014DE139566

PATIENT
  Sex: Female
  Weight: 58 kg

DRUGS (8)
  1. VITAMIN B12 [Concomitant]
     Active Substance: CYANOCOBALAMIN
     Indication: VITAMIN B12 DEFICIENCY
     Dosage: 1000 IU, UNK
     Route: 030
     Dates: start: 20130109
  2. FOLIC ACID. [Concomitant]
     Active Substance: FOLIC ACID
     Indication: FOLATE DEFICIENCY
     Dosage: 5 UG, UNK
     Route: 048
     Dates: start: 20130109
  3. PANTOZOL [Concomitant]
     Active Substance: PANTOPRAZOLE SODIUM
     Indication: PRODUCT USED FOR UNKNOWN INDICATION
     Dosage: UNK
     Route: 065
     Dates: start: 20150113
  4. MICTONORM UNO [Concomitant]
     Indication: DYSURIA
     Dosage: 30 MG, UNK
     Route: 048
     Dates: start: 20140310
  5. IBUPROFEN. [Concomitant]
     Active Substance: IBUPROFEN
     Indication: PRODUCT USED FOR UNKNOWN INDICATION
     Dosage: UNK
     Route: 065
     Dates: start: 20150113
  6. GILENYA [Suspect]
     Active Substance: FINGOLIMOD HYDROCHLORIDE
     Indication: MULTIPLE SCLEROSIS
     Dosage: 0.5 MG, QD
     Route: 048
     Dates: start: 20130624
  7. DEKRISTOL [Concomitant]
     Active Substance: CHOLECALCIFEROL
     Indication: VITAMIN D DEFICIENCY
     Dosage: 20000 IU, UNK
     Route: 048
     Dates: start: 20130109
  8. SPASMEX [Concomitant]
     Indication: MULTIPLE SCLEROSIS
     Dosage: 45 MG, UNK
     Route: 048
     Dates: start: 20131201, end: 20140301

REACTIONS (2)
  - Uterine leiomyoma [Recovered/Resolved]
  - Oophoritis [Not Recovered/Not Resolved]

NARRATIVE: CASE EVENT DATE: 20140922
